FAERS Safety Report 6073476-4 (Version None)
Quarter: 2009Q1

REPORT INFORMATION
  Report Type: 
  Country: None (occurrence: None)
  Receive Date: 20090211
  Receipt Date: 20090206
  Transmission Date: 20090719
  Serious: Yes (Life-Threatening)
  Sender: FDA-Public Use
  Company Number: JP-BAYER-200910361BYL

PATIENT
  Age: 87 Year
  Sex: Female

DRUGS (10)
  1. CIPROXAN-I.V. [Suspect]
     Indication: PNEUMONIA ASPIRATION
     Dosage: TOTAL DAILY DOSE: 600 MG  UNIT DOSE: 300 MG
     Route: 041
     Dates: start: 20090117, end: 20090123
  2. MINOPEN [Suspect]
     Indication: PNEUMONIA ASPIRATION
     Route: 041
     Dates: start: 20090112, end: 20090123
  3. CARBENIN [Suspect]
     Indication: PNEUMONIA ASPIRATION
     Route: 041
     Dates: start: 20090123, end: 20090127
  4. PENTCILLIN [Concomitant]
     Indication: PNEUMONIA ASPIRATION
     Route: 041
  5. VENOGLOBULIN [Concomitant]
     Route: 042
     Dates: start: 20090123, end: 20090128
  6. ZYVOX [Concomitant]
     Route: 042
     Dates: start: 20090127, end: 20090130
  7. FOY [Concomitant]
     Route: 041
     Dates: start: 20090127, end: 20090204
  8. HANP [Concomitant]
     Route: 042
     Dates: start: 20090128, end: 20090204
  9. LASIX [Concomitant]
     Route: 042
     Dates: start: 20090125, end: 20090204
  10. NEOPAREN [Concomitant]
     Route: 041
     Dates: start: 20090131, end: 20090204

REACTIONS (1)
  - LIVER DISORDER [None]
